FAERS Safety Report 17314316 (Version 1)
Quarter: 2020Q1

REPORT INFORMATION
  Report Type: Spontaneous
  Country: US (occurrence: US)
  Receive Date: 20200124
  Receipt Date: 20200124
  Transmission Date: 20200409
  Serious: Yes (Other)
  Sender: FDA-Public Use
  Company Number: US-AUROBINDO-AUR-APL-2020-003275

PATIENT
  Age: 55 Year
  Sex: Male

DRUGS (2)
  1. DOCETAXEL. [Suspect]
     Active Substance: DOCETAXEL
     Indication: PROSTATE CANCER METASTATIC
     Dosage: 75 MILLIGRAM/SQ. METER, AREA UNDER THE CURVE 6
     Route: 065
  2. CARBOPLATIN. [Suspect]
     Active Substance: CARBOPLATIN
     Indication: PROSTATE CANCER METASTATIC
     Dosage: UNK, AREA UNDER THE CURVE 6
     Route: 065

REACTIONS (2)
  - Myositis [Recovered/Resolved]
  - Recall phenomenon [Recovered/Resolved]
